FAERS Safety Report 7149253-X (Version None)
Quarter: 2010Q4

REPORT INFORMATION
  Report Type: 
  Country: None (occurrence: None)
  Receive Date: 20101209
  Receipt Date: 20101207
  Transmission Date: 20110411
  Serious: Yes (Life-Threatening, Hospitalization, Other)
  Sender: FDA-Public Use
  Company Number: GXKR2008DE11347

PATIENT
  Sex: Female
  Weight: 74 kg

DRUGS (3)
  1. HCT HEXAL (NGX) [Suspect]
     Dosage: 25 MG, BID
     Route: 048
     Dates: start: 19980101, end: 20080912
  2. CARBAMAZEPINE [Interacting]
     Dosage: 400 MG, BID
     Dates: start: 19980101
  3. MELLERIL - SLOW RELEASE ^AWD^ [Interacting]
     Dosage: 1 DF, BID
     Route: 048
     Dates: start: 19980101, end: 20080912

REACTIONS (4)
  - HYPOKALAEMIA [None]
  - LONG QT SYNDROME [None]
  - LOSS OF CONSCIOUSNESS [None]
  - TORSADE DE POINTES [None]
